FAERS Safety Report 5075742-8 (Version None)
Quarter: 2006Q3

REPORT INFORMATION
  Report Type: 
  Country: None (occurrence: None)
  Receive Date: 20060809
  Receipt Date: 20051209
  Transmission Date: 20061208
  Serious: No
  Sender: FDA-Public Use
  Company Number: US-AMGEN-US160928

PATIENT
  Age: 74 Year
  Sex: Female

DRUGS (11)
  1. EPOGEN [Suspect]
     Indication: RENAL FAILURE CHRONIC
     Dates: start: 20000101, end: 20051205
  2. ALLOPURINOL [Concomitant]
  3. PREDNISONE [Concomitant]
  4. AZITHROMYCIN [Concomitant]
  5. DIGOXIN [Concomitant]
  6. METOPROLOL TARTRATE [Concomitant]
  7. COZAAR [Concomitant]
  8. FUROSEMIDE [Concomitant]
  9. ENALAPRIL MALEATE [Concomitant]
  10. GLIPIZIDE [Concomitant]
  11. LOVASTATIN [Concomitant]

REACTIONS (1)
  - THERAPEUTIC RESPONSE DECREASED [None]
